FAERS Safety Report 18810535 (Version 1)
Quarter: 2021Q1

REPORT INFORMATION
  Report Type: Spontaneous
  Country: CA (occurrence: CA)
  Receive Date: 20210129
  Receipt Date: 20210129
  Transmission Date: 20210419
  Serious: Yes (Other)
  Sender: FDA-Public Use
  Company Number: CA-PURDUE-USA-2020-0201848

PATIENT
  Sex: Male

DRUGS (1)
  1. OXYCONTIN [Suspect]
     Active Substance: OXYCODONE HYDROCHLORIDE
     Indication: MUSCULOSKELETAL DISCOMFORT
     Dosage: 20 MG, BID
     Route: 048
     Dates: start: 20040611

REACTIONS (5)
  - Parkinson^s disease [Unknown]
  - Diabetes mellitus [Unknown]
  - Suicidal ideation [Unknown]
  - Mental disorder [Unknown]
  - Drug dependence [Unknown]
